FAERS Safety Report 8901827 (Version 1)
Quarter: 2012Q4

REPORT INFORMATION
  Report Type: Spontaneous
  Country: US (occurrence: None)
  Receive Date: 20121106
  Receipt Date: 20121106
  Transmission Date: 20130627
  Serious: Yes (Death, Other)
  Sender: FDA-Public Use
  Company Number: 2012P1061692

PATIENT
  Age: 74 Year
  Sex: Female

DRUGS (1)
  1. HEPARIN [Suspect]
     Dates: start: 201011

REACTIONS (6)
  - Contusion [None]
  - Skin discolouration [None]
  - Abdominal rigidity [None]
  - Fluid retention [None]
  - Endometrial cancer [None]
  - Product quality issue [None]
